FAERS Safety Report 9790726 (Version 1)
Quarter: 2013Q4

REPORT INFORMATION
  Report Type: Spontaneous
  Country: US (occurrence: US)
  Receive Date: 20131231
  Receipt Date: 20131231
  Transmission Date: 20140711
  Serious: No
  Sender: FDA-Public Use
  Company Number: US-PFIZER INC-2013373859

PATIENT
  Age: 63 Year
  Sex: Male
  Weight: 86.62 kg

DRUGS (2)
  1. CHANTIX [Suspect]
     Indication: SMOKING CESSATION THERAPY
     Dosage: 0.5 MG, 2X/DAY
     Route: 048
     Dates: start: 20131228
  2. KLONOPIN [Concomitant]
     Indication: ANXIETY
     Dosage: UNK

REACTIONS (3)
  - Gastrointestinal pain [Unknown]
  - Diarrhoea [Not Recovered/Not Resolved]
  - Dysphoria [Not Recovered/Not Resolved]
